FAERS Safety Report 5589379-5 (Version None)
Quarter: 2008Q1

REPORT INFORMATION
  Report Type: 
  Country: None (occurrence: None)
  Receive Date: 20080114
  Receipt Date: 20080104
  Transmission Date: 20080703
  Serious: Yes (Other)
  Sender: FDA-Public Use
  Company Number: JP-BRISTOL-MYERS SQUIBB COMPANY-14021398

PATIENT
  Age: 34 Year
  Sex: Female

DRUGS (20)
  1. ARIPIPRAZOLE [Suspect]
     Indication: SCHIZOPHRENIA
     Dosage: 17-24APR076MG;25APR-01MAY12MG;2-21MAY18MG;22-29MAY24MG;30MAY-12JUN30MG;13-26JUN07 24MG;
     Route: 048
     Dates: start: 20070417, end: 20070719
  2. FLUNITRAZEPAM [Concomitant]
     Indication: INSOMNIA
     Route: 048
     Dates: start: 20060419
  3. ZOTEPINE [Concomitant]
     Indication: SCHIZOPHRENIA
     Dosage: 19APR06-13JUN 300MG;14JUN-19SEP 150MG;20SEP-26DEC 200 MG;27DEC06-01MAY07 150MG.
     Route: 048
     Dates: start: 20060419, end: 20060919
  4. VALPROATE SODIUM [Concomitant]
     Indication: SCHIZOPHRENIA
     Route: 048
     Dates: start: 20060419, end: 20071016
  5. VALPROATE SODIUM [Concomitant]
     Indication: AFFECT LABILITY
     Route: 048
     Dates: start: 20060419, end: 20071016
  6. PEROSPIRONE [Concomitant]
     Indication: SCHIZOPHRENIA
     Dosage: 19APR-13JUN06 24MG;14JUN-19SEP06 48MG;20SEP-03OCT06 32MG;04OCT-26DEC 48 MG;27DEC-6FEB07 24MG.
     Route: 048
     Dates: start: 20060419, end: 20071009
  7. SENNA [Concomitant]
     Indication: CONSTIPATION
     Dosage: 19-APR-2006 TO 26-DEC-2006, 80 MG, DURATION 36 WKS. 27-DEC-2006 ONGOING - 160 MG.
     Route: 048
     Dates: start: 20060419
  8. AMOBARBITAL SODIUM [Concomitant]
     Indication: INSOMNIA
     Dosage: 02-NOV-07 ONGOING 0.2G.
     Route: 048
     Dates: start: 20060419, end: 20070529
  9. PROMETHAZINE [Concomitant]
     Indication: PARKINSONISM
     Route: 048
     Dates: start: 20060419, end: 20070529
  10. DISOPYRAMIDE [Concomitant]
     Indication: ARRHYTHMIA
     Route: 048
     Dates: start: 20060920, end: 20070710
  11. LEVOMEPROMAZINE MALEATE [Concomitant]
     Indication: SCHIZOPHRENIA
     Dosage: 27DEC06-01MAY07 150MG;02MAY-12JUN 75MG;13JUN-10JUL 150MG;09OCT ONGOING 150 MG
     Route: 048
     Dates: start: 20061227
  12. DIPYRIDAMOLE [Concomitant]
     Route: 048
     Dates: start: 20060419
  13. FLURAZEPAM HCL [Concomitant]
     Indication: INSOMNIA
     Route: 048
     Dates: start: 20070530
  14. LORAZEPAM [Concomitant]
     Indication: SEDATION
     Route: 048
     Dates: start: 20070530, end: 20070612
  15. LORAZEPAM [Concomitant]
     Indication: AFFECT LABILITY
     Route: 048
     Dates: start: 20070530, end: 20070612
  16. HYDROXYZINE PAMOATE [Concomitant]
     Indication: ANXIETY
     Route: 048
     Dates: start: 20070530, end: 20070612
  17. HYDROXYZINE PAMOATE [Concomitant]
     Indication: TENSION
     Route: 048
     Dates: start: 20070530, end: 20070612
  18. CHLORPROMAZINE + PROMETHAZINE [Concomitant]
     Indication: SCHIZOPHRENIA
     Dosage: FROM 09-NOV-07 CONTINUING 2DF.
     Route: 048
     Dates: start: 20070530
  19. CHLORPROMAZINE + PROMETHAZINE [Concomitant]
     Indication: INSOMNIA
     Dosage: FROM 09-NOV-07 CONTINUING 2DF.
     Route: 048
     Dates: start: 20070530
  20. SODIUM BICARBONATE [Concomitant]
     Route: 048
     Dates: start: 20060419

REACTIONS (4)
  - ABNORMAL BEHAVIOUR [None]
  - AGGRESSION [None]
  - DISINHIBITION [None]
  - PORIOMANIA [None]
